FAERS Safety Report 8955732 (Version 1)
Quarter: 2012Q4

REPORT INFORMATION
  Report Type: 
  Country: US (occurrence: US)
  Receive Date: 20121210
  Receipt Date: 20121210
  Transmission Date: 20130627
  Serious: No
  Sender: FDA-Public Use
  Company Number: US-BAYER-2012-129314

PATIENT
  Age: 46 Year
  Sex: Female

DRUGS (1)
  1. GADAVIST [Suspect]
     Dosage: 5 ml, UNK
     Route: 042

REACTIONS (2)
  - Sneezing [None]
  - Urticaria [None]
